FAERS Safety Report 9465068 (Version 2)
Quarter: 2013Q4

REPORT INFORMATION
  Report Type: Report from Study
  Country: JP (occurrence: JP)
  Receive Date: 20130819
  Receipt Date: 20131025
  Transmission Date: 20140711
  Serious: Yes (Death, Other)
  Sender: FDA-Public Use
  Company Number: JP-UCBSA-095209

PATIENT
  Age: 52 Year
  Sex: Male
  Weight: 59.3 kg

DRUGS (18)
  1. E KEPPRA [Suspect]
     Indication: PARTIAL SEIZURES WITH SECONDARY GENERALISATION
     Route: 048
     Dates: start: 20121024, end: 20121028
  2. E KEPPRA [Suspect]
     Indication: COMPLEX PARTIAL SEIZURES
     Route: 048
     Dates: start: 20121024, end: 20121028
  3. E KEPPRA [Suspect]
     Indication: PARTIAL SEIZURES WITH SECONDARY GENERALISATION
     Route: 048
     Dates: start: 20121029, end: 20121105
  4. E KEPPRA [Suspect]
     Indication: COMPLEX PARTIAL SEIZURES
     Route: 048
     Dates: start: 20121029, end: 20121105
  5. E KEPPRA [Suspect]
     Indication: PARTIAL SEIZURES WITH SECONDARY GENERALISATION
     Route: 048
     Dates: start: 20121106, end: 20130320
  6. E KEPPRA [Suspect]
     Indication: COMPLEX PARTIAL SEIZURES
     Route: 048
     Dates: start: 20121106, end: 20130320
  7. METHOTREXATE [Suspect]
     Indication: CENTRAL NERVOUS SYSTEM LYMPHOMA
     Dosage: DAILY DOSE: 6125 MG
     Route: 042
     Dates: start: 20121029, end: 20121029
  8. METHOTREXATE [Suspect]
     Indication: CENTRAL NERVOUS SYSTEM LYMPHOMA
     Dosage: DAILY DOSE: 6125 MG
     Route: 042
     Dates: start: 20121114, end: 20121114
  9. METHOTREXATE [Suspect]
     Indication: CENTRAL NERVOUS SYSTEM LYMPHOMA
     Dosage: DAILY DOSE: 6125 MG
     Route: 042
     Dates: start: 20121225, end: 20121225
  10. ALEVIATIN [Concomitant]
     Dosage: DAILY DOSE: 300 MG
     Route: 048
     Dates: start: 20130319, end: 20130319
  11. ALEVIATIN [Concomitant]
     Dosage: DAILY DOSE:200MG
     Route: 048
     Dates: start: 20121120, end: 20130318
  12. ALEVIATIN [Concomitant]
     Dosage: DAILY DOSE: 300MG
     Route: 048
     Dates: start: 20121114, end: 20121119
  13. ALEVIATIN [Concomitant]
     Dosage: DAILY DOSE: 300 MG
     Route: 042
     Dates: start: 20121102, end: 20121105
  14. ALEVIATIN [Concomitant]
     Dosage: DAILY DOSE: 400 MG
     Route: 042
     Dates: start: 20121106, end: 20121113
  15. ALEVIATIN [Concomitant]
     Dosage: DAILY DOSE: 250 MG
     Route: 042
     Dates: start: 20121029, end: 20121101
  16. ALEVIATIN [Concomitant]
     Dosage: DAILY DOSE: 250 MG
     Route: 042
     Dates: start: 20121024, end: 20121024
  17. ALEVIATIN [Concomitant]
     Dosage: DAILY DOSE: 200MG
     Route: 048
     Dates: start: 20121025, end: 20121028
  18. FOSTOIN [Concomitant]
     Dosage: DAILY DOSE: 450 MG
     Route: 042
     Dates: start: 20130320, end: 20130320

REACTIONS (2)
  - Central nervous system lymphoma [Fatal]
  - Pancytopenia [Recovering/Resolving]
